FAERS Safety Report 13007479 (Version 2)
Quarter: 2016Q4

REPORT INFORMATION
  Report Type: Report from Study
  Country: GB (occurrence: GB)
  Receive Date: 20161207
  Receipt Date: 20161208
  Transmission Date: 20170207
  Serious: Yes (Other)
  Sender: FDA-Public Use
  Company Number: ALCN2016GB008001

PATIENT
  Age: 51 Year
  Sex: Male

DRUGS (3)
  1. TIMOLOL. [Suspect]
     Active Substance: TIMOLOL
     Indication: PIGMENTARY GLAUCOMA
     Dosage: UNK
     Route: 047
  2. BIMATOPROST. [Suspect]
     Active Substance: BIMATOPROST
     Indication: PIGMENTARY GLAUCOMA
     Dosage: UNK
     Route: 047
  3. BRINZOLAMIDE [Suspect]
     Active Substance: BRINZOLAMIDE
     Indication: PIGMENTARY GLAUCOMA
     Dosage: UNK
     Route: 047

REACTIONS (4)
  - Maculopathy [Recovered/Resolved]
  - Hypotony of eye [Recovered/Resolved]
  - Chorioretinal folds [Recovered/Resolved]
  - Conjunctival bleb [Recovered/Resolved]
